FAERS Safety Report 4305678-9 (Version None)
Quarter: 2004Q1

REPORT INFORMATION
  Report Type: 
  Country: None (occurrence: None)
  Receive Date: 20040223
  Receipt Date: 20031121
  Transmission Date: 20041129
  Serious: No
  Sender: FDA-Public Use
  Company Number: SU-2003-001944

PATIENT
  Age: 68 Year
  Sex: Female
  Weight: 58.0604 kg

DRUGS (4)
  1. BENICAR [Suspect]
     Indication: HYPERTENSION
     Dosage: 20 MG QD PO
     Route: 048
     Dates: start: 20031010, end: 20031023
  2. PREMARIN [Concomitant]
  3. CALAN - SLOW RELEASE [Concomitant]
  4. XANAX [Concomitant]

REACTIONS (1)
  - CONSTIPATION [None]
